FAERS Safety Report 24421030 (Version 2)
Quarter: 2024Q4

REPORT INFORMATION
  Report Type: Spontaneous
  Country: PE (occurrence: PE)
  Receive Date: 20241010
  Receipt Date: 20241018
  Transmission Date: 20250115
  Serious: No
  Sender: ROCHE
  Company Number: PE-BoehringerIngelheim-2024-BI-031577

PATIENT
  Age: 75 Year
  Sex: Female

DRUGS (2)
  1. ALTEPLASE [Suspect]
     Active Substance: ALTEPLASE
     Indication: Pulmonary embolism
     Route: 040
     Dates: start: 20240601, end: 20240601
  2. ALTEPLASE [Suspect]
     Active Substance: ALTEPLASE
     Indication: Cardiac disorder

REACTIONS (1)
  - Post procedural haemorrhage [Recovered/Resolved]

NARRATIVE: CASE EVENT DATE: 20240601
